FAERS Safety Report 17961824 (Version 1)
Quarter: 2020Q2

REPORT INFORMATION
  Report Type: Spontaneous
  Country: US (occurrence: US)
  Receive Date: 20200629
  Receipt Date: 20200629
  Transmission Date: 20200714
  Serious: No
  Sender: FDA-Public Use
  Company Number: None

PATIENT
  Age: 83 Year
  Sex: Male

DRUGS (1)
  1. CEFAZOLIN (CEFAZOLIN NA 1GM/BAG INJ) [Suspect]
     Active Substance: CEFAZOLIN SODIUM
     Indication: VASCULAR OPERATION
     Route: 042
     Dates: start: 20200221, end: 20200224

REACTIONS (3)
  - Dialysis [None]
  - Seizure [None]
  - Incorrect dose administered [None]

NARRATIVE: CASE EVENT DATE: 20200224
